FAERS Safety Report 8393256-4 (Version None)
Quarter: 2012Q2

REPORT INFORMATION
  Report Type: 
  Country: None (occurrence: None)
  Receive Date: 20120529
  Receipt Date: 20120523
  Transmission Date: 20120825
  Serious: Yes (Other)
  Sender: FDA-Public Use
  Company Number: CA-ROCHE-1057923

PATIENT
  Sex: Female
  Weight: 58 kg

DRUGS (3)
  1. ACTEMRA [Suspect]
     Indication: RHEUMATOID ARTHRITIS
     Dosage: LAST DOSE PRIOR TO SAE: 12/JAN/2012
     Route: 042
     Dates: start: 20070101
  2. CELEBREX [Concomitant]
     Dates: start: 20031022
  3. METHOTREXATE [Concomitant]
     Dates: start: 20031022

REACTIONS (1)
  - METASTASES TO BONE [None]
